FAERS Safety Report 5599519-X (Version None)
Quarter: 2008Q1

REPORT INFORMATION
  Report Type: 
  Country: None (occurrence: None)
  Receive Date: 20080123
  Receipt Date: 20080115
  Transmission Date: 20080703
  Serious: Yes (Other)
  Sender: FDA-Public Use
  Company Number: US-JNJFOC-20080104374

PATIENT
  Sex: Female

DRUGS (5)
  1. DURAGESIC-100 [Suspect]
     Route: 062
  2. DURAGESIC-100 [Suspect]
     Route: 062
  3. DURAGESIC-100 [Suspect]
     Dosage: 100 MCG AND 12.5 MCG
     Route: 062
  4. DURAGESIC-100 [Suspect]
     Indication: PAIN
     Route: 062
  5. AVELOX [Suspect]
     Indication: LOWER RESPIRATORY TRACT INFECTION
     Route: 048

REACTIONS (7)
  - ANAPHYLACTIC REACTION [None]
  - DRUG EFFECT DECREASED [None]
  - INAPPROPRIATE SCHEDULE OF DRUG ADMINISTRATION [None]
  - LOWER RESPIRATORY TRACT INFECTION [None]
  - SURGERY [None]
  - TIBIA FRACTURE [None]
  - WRONG TECHNIQUE IN DRUG USAGE PROCESS [None]
